FAERS Safety Report 7001176-2 (Version None)
Quarter: 2010Q3

REPORT INFORMATION
  Report Type: 
  Country: None (occurrence: None)
  Receive Date: 20100920
  Receipt Date: 20071206
  Transmission Date: 20110219
  Serious: Yes (Other)
  Sender: FDA-Public Use
  Company Number: US-ASTRAZENECA-2006UW23240

PATIENT
  Age: 33 Year
  Sex: Female
  Weight: 92.5 kg

DRUGS (9)
  1. SEROQUEL [Suspect]
     Indication: DEPRESSION
     Route: 048
     Dates: start: 20010101, end: 20050301
  2. SEROQUEL [Suspect]
     Indication: SCHIZOPHRENIA
     Route: 048
     Dates: start: 20010101, end: 20050301
  3. SEROQUEL [Suspect]
     Indication: BIPOLAR DISORDER
     Route: 048
     Dates: start: 20010101, end: 20050301
  4. SEROQUEL [Suspect]
     Dosage: 50 MG BID AND 200 MG QHS
     Route: 048
     Dates: start: 20040524
  5. SEROQUEL [Suspect]
     Dosage: 50 MG BID AND 200 MG QHS
     Route: 048
     Dates: start: 20040524
  6. SEROQUEL [Suspect]
     Dosage: 50 MG BID AND 200 MG QHS
     Route: 048
     Dates: start: 20040524
  7. LITHIUM [Concomitant]
     Indication: BIPOLAR DISORDER
     Dates: start: 20010418
  8. TRAZODONE HCL [Concomitant]
     Dosage: 50 MG TO 150 MG
     Dates: start: 20010418
  9. ADVAIR DISKUS 100/50 [Concomitant]
     Indication: ASTHMA
     Dosage: 250/50 MG
     Dates: start: 20020201

REACTIONS (3)
  - BLOOD GLUCOSE INCREASED [None]
  - DIABETES MELLITUS [None]
  - HYPOGLYCAEMIA [None]
